FAERS Safety Report 11005269 (Version 1)
Quarter: 2015Q2

REPORT INFORMATION
  Report Type: Spontaneous
  Country: NL (occurrence: NL)
  Receive Date: 20150409
  Receipt Date: 20150409
  Transmission Date: 20150821
  Serious: Yes (Other)
  Sender: FDA-Public Use
  Company Number: NL-WATSON-2015-07235

PATIENT
  Age: 48 Year
  Sex: Female
  Weight: 65 kg

DRUGS (2)
  1. CLINDAMYCINE                       /00166002/ [Concomitant]
     Indication: PRODUCT USED FOR UNKNOWN INDICATION
     Dosage: 1 DF, DAILY
     Route: 003
     Dates: start: 201502
  2. MINOCYCLINE [Suspect]
     Active Substance: MINOCYCLINE\MINOCYCLINE HYDROCHLORIDE
     Indication: ROSACEA
     Dosage: 50 MG, BID
     Route: 048
     Dates: start: 20150312, end: 20150316

REACTIONS (2)
  - Dizziness [Recovered/Resolved]
  - Paraesthesia [Recovered/Resolved]

NARRATIVE: CASE EVENT DATE: 201503
